FAERS Safety Report 18687578 (Version 1)
Quarter: 2020Q4

REPORT INFORMATION
  Report Type: Spontaneous
  Country: US (occurrence: US)
  Receive Date: 20201231
  Receipt Date: 20201231
  Transmission Date: 20210114
  Serious: Yes (Life-Threatening, Hospitalization, Other)
  Sender: FDA-Public Use
  Company Number: US-SA-2020SA376440

PATIENT

DRUGS (11)
  1. PROPOFOL. [Suspect]
     Active Substance: PROPOFOL
     Indication: MAINTENANCE OF ANAESTHESIA
     Dosage: 50 UG/KG, QMN (25?50 ?G/KG/MIN)
  2. PROPOFOL. [Suspect]
     Active Substance: PROPOFOL
     Dosage: 25 UG/KG, QMN (25?50 ?G/KG/MIN)
  3. TRAMADOL. [Concomitant]
     Active Substance: TRAMADOL
     Indication: ORAL PAIN
  4. ISOFLURANE. [Suspect]
     Active Substance: ISOFLURANE
     Indication: MAINTENANCE OF ANAESTHESIA
     Dosage: UNK
  5. LOSARTAN. [Concomitant]
     Active Substance: LOSARTAN
     Indication: HYPERTENSION
  6. SUFENTANIL [Suspect]
     Active Substance: SUFENTANIL
     Dosage: 0.1?0.5 ?G/KG/HR
  7. KETAMINE [Suspect]
     Active Substance: KETAMINE
     Indication: MAINTENANCE OF ANAESTHESIA
     Dosage: 5 UG/KG, QMN (3?5 ?G/KG/MIN)
  8. KETAMINE [Suspect]
     Active Substance: KETAMINE
     Dosage: 3?5 ?G/KG/MIN
  9. SUFENTANIL [Suspect]
     Active Substance: SUFENTANIL
     Indication: MAINTENANCE OF ANAESTHESIA
     Dosage: 0.1 UG/KG, QH (0.1?0.5 ?G/KG/HR)
  10. ISOFLURANE. [Suspect]
     Active Substance: ISOFLURANE
     Indication: MAINTENANCE OF ANAESTHESIA
     Dosage: UNK
  11. LIDOCAINE. [Suspect]
     Active Substance: LIDOCAINE
     Indication: MAINTENANCE OF ANAESTHESIA
     Dosage: 2 MG, QMN

REACTIONS (1)
  - Vasoplegia syndrome [Recovered/Resolved]
